FAERS Safety Report 17800613 (Version 1)
Quarter: 2020Q2

REPORT INFORMATION
  Report Type: Spontaneous
  Country: FR (occurrence: FR)
  Receive Date: 20200518
  Receipt Date: 20200518
  Transmission Date: 20200714
  Serious: Yes (Other)
  Sender: FDA-Public Use
  Company Number: FR-ALSI-202000187

PATIENT
  Age: 81 Year
  Sex: Female
  Weight: 43 kg

DRUGS (1)
  1. OXYGEN. [Suspect]
     Active Substance: OXYGEN
     Indication: DYSPNOEA
     Route: 055
     Dates: start: 20200419, end: 20200419

REACTIONS (4)
  - Dyspnoea [Recovered/Resolved]
  - Device use error [Recovered/Resolved]
  - Depressed level of consciousness [Recovered/Resolved]
  - Product administration error [Recovered/Resolved]
